FAERS Safety Report 6218726-6 (Version None)
Quarter: 2009Q2

REPORT INFORMATION
  Report Type: 
  Country: None (occurrence: None)
  Receive Date: 20090608
  Receipt Date: 20090526
  Transmission Date: 20091009
  Serious: Yes (Hospitalization)
  Sender: FDA-Public Use
  Company Number: US-ELI_LILLY_AND_COMPANY-US200905005066

PATIENT
  Sex: Male

DRUGS (5)
  1. HUMULIN 70/30 [Suspect]
     Indication: TYPE 2 DIABETES MELLITUS
     Dosage: 20 U, EACH MORNING
     Dates: start: 20040101
  2. HUMULIN 70/30 [Suspect]
     Dosage: 31 U, EACH EVENING
     Dates: start: 20040101
  3. HUMULIN 70/30 [Suspect]
     Dosage: 20 U, EACH MORNING
     Dates: start: 20030101
  4. HUMULIN 70/30 [Suspect]
     Dosage: 31 U, EACH EVENING
  5. NOVOLOG MIX 70/30 [Concomitant]
     Dosage: UNK, UNK

REACTIONS (6)
  - HYPOTENSION [None]
  - ILL-DEFINED DISORDER [None]
  - LIMB INJURY [None]
  - LOCALISED INFECTION [None]
  - NEUROPATHIC ARTHROPATHY [None]
  - RENAL FAILURE [None]
